FAERS Safety Report 7021077-3 (Version None)
Quarter: 2010Q3

REPORT INFORMATION
  Report Type: 
  Country: None (occurrence: None)
  Receive Date: 20100929
  Receipt Date: 20100923
  Transmission Date: 20110219
  Serious: Yes (Life-Threatening, Hospitalization, Disabling, Congenital Anomaly, Other)
  Sender: FDA-Public Use
  Company Number: CA-PFIZER INC-2008022976

PATIENT
  Age: 64 Year
  Sex: Male
  Weight: 83.9 kg

DRUGS (14)
  1. IBUPROFEN [Suspect]
     Indication: RHEUMATOID ARTHRITIS
     Dosage: 7 TABLETS/DAY
     Route: 048
     Dates: start: 20071116, end: 20080308
  2. NAPROXEN [Suspect]
     Indication: RHEUMATOID ARTHRITIS
     Dosage: 7 TABLETS/DAY
     Route: 048
     Dates: start: 20071116, end: 20080308
  3. BLINDED *NO SUBJECT DRUG [Suspect]
     Indication: RHEUMATOID ARTHRITIS
     Dosage: 7 TABLETS/DAY
     Route: 048
     Dates: start: 20071116, end: 20080308
  4. BLINDED *PLACEBO [Suspect]
     Indication: RHEUMATOID ARTHRITIS
     Dosage: 7 TABLETS/DAY
     Route: 048
     Dates: start: 20071116, end: 20080308
  5. BLINDED CELECOXIB [Suspect]
     Indication: RHEUMATOID ARTHRITIS
     Dosage: 7 TABLETS/DAY
     Route: 048
     Dates: start: 20071116, end: 20080308
  6. IBUPROFEN [Suspect]
     Dosage: 7 TABLETS/DAY
     Route: 048
     Dates: start: 20071116, end: 20080308
  7. NAPROXEN [Suspect]
     Dosage: 7 TABLETS/DAY
     Route: 048
     Dates: start: 20071116, end: 20080308
  8. NEXIUM [Concomitant]
     Dosage: 40 MG, 1X/DAY
     Route: 048
     Dates: start: 20071116, end: 20080308
  9. PREDNISONE [Concomitant]
     Dates: start: 19990107
  10. HYDROMORPHONE HYDROCHLORIDE [Concomitant]
     Dates: start: 20061101
  11. GABAPENTIN [Concomitant]
     Dates: start: 20061101
  12. NOVOLIN 70/30 [Concomitant]
     Dates: start: 20061001
  13. HUMALOG [Concomitant]
     Dates: start: 20061001
  14. ZESTRIL [Concomitant]
     Dates: start: 20031101

REACTIONS (5)
  - ACUTE MYOCARDIAL INFARCTION [None]
  - ARTHRITIS BACTERIAL [None]
  - DEAFNESS [None]
  - PERIPHERAL ISCHAEMIA [None]
  - PNEUMONIA [None]
